FAERS Safety Report 11306211 (Version 4)
Quarter: 2015Q4

REPORT INFORMATION
  Report Type: Spontaneous
  Country: US (occurrence: US)
  Receive Date: 20150723
  Receipt Date: 20151009
  Transmission Date: 20160304
  Serious: No
  Sender: FDA-Public Use
  Company Number: US-PFIZER INC-2015243250

PATIENT
  Age: 62 Year
  Sex: Female

DRUGS (14)
  1. PROBIOTICS [Concomitant]
     Active Substance: PROBIOTICS NOS
     Dosage: UNK, 1X/DAY
  2. POLYETHYLENE GLYCOL 3350. [Concomitant]
     Active Substance: POLYETHYLENE GLYCOL 3350
     Indication: GASTROINTESTINAL DISORDER
     Dosage: POWER 1 TBSP. ONE TIME A DAY
  3. CELEBREX [Suspect]
     Active Substance: CELECOXIB
     Indication: ARTHRITIS
     Dosage: 200 MG, 1X/DAY
  4. GLIPIZIDE. [Concomitant]
     Active Substance: GLIPIZIDE
     Indication: DIABETES MELLITUS
     Dosage: 10 MG, 1X/DAY
  5. GABAPENTIN. [Concomitant]
     Active Substance: GABAPENTIN
     Indication: NEUROPATHY PERIPHERAL
     Dosage: 300 MG, 1X/DAY
  6. PANTOPRAZOLE [Concomitant]
     Active Substance: PANTOPRAZOLE SODIUM
     Indication: GASTROOESOPHAGEAL REFLUX DISEASE
     Dosage: 40 MG, 1X/DAY
  7. LETROZOLE. [Concomitant]
     Active Substance: LETROZOLE
     Indication: NEOPLASM MALIGNANT
     Dosage: 2.5 DF, 1X/DAY
  8. LOVASTATIN. [Concomitant]
     Active Substance: LOVASTATIN
     Indication: BLOOD CHOLESTEROL ABNORMAL
     Dosage: 40MG - TWO OF THOSE ONCE A DAY
  9. ASPIRIN. [Concomitant]
     Active Substance: ASPIRIN
     Indication: CARDIOVASCULAR DISORDER
     Dosage: 81 MG, 1X/DAY
  10. VITAMIN B12 [Concomitant]
     Active Substance: CYANOCOBALAMIN
     Dosage: 1000 ?G, 1X/DAY
  11. JANUMET [Concomitant]
     Active Substance: METFORMIN HYDROCHLORIDE\SITAGLIPTIN PHOSPHATE
     Indication: DIABETES MELLITUS
     Dosage: 50-1000 UNSURE OF UNIT, TAKES 1 OF THESE TWICE A DAY
  12. CALCIUM + VIT D [Concomitant]
     Active Substance: CALCIUM\VITAMIN D
     Indication: OSTEOPOROSIS
     Dosage: 1 DF, [CALCIUM 600MG]/ [VIT D 1200/800], 1X/DAY
  13. VITAMIN D3 [Concomitant]
     Active Substance: CHOLECALCIFEROL
     Dosage: 1000 MG, 1X/DAY
  14. FERROUS SULFATE [Concomitant]
     Active Substance: FERROUS SULFATE\FERROUS SULFATE, DRIED
     Indication: MINERAL SUPPLEMENTATION
     Dosage: 650 MG, 1X/DAY

REACTIONS (10)
  - Muscle disorder [Not Recovered/Not Resolved]
  - Contusion [Unknown]
  - Muscular weakness [Unknown]
  - Bronchitis [Recovered/Resolved]
  - Condition aggravated [Not Recovered/Not Resolved]
  - Post-traumatic neck syndrome [Unknown]
  - Pain [Unknown]
  - Upper respiratory tract infection [Recovered/Resolved]
  - Back disorder [Not Recovered/Not Resolved]
  - Fall [Not Recovered/Not Resolved]

NARRATIVE: CASE EVENT DATE: 201505
